FAERS Safety Report 4679240-2 (Version None)
Quarter: 2005Q2

REPORT INFORMATION
  Report Type: 
  Country: None (occurrence: None)
  Receive Date: 20050531
  Receipt Date: 20050531
  Transmission Date: 20051028
  Serious: No
  Sender: FDA-Public Use
  Company Number: None

PATIENT
  Age: 50 Year
  Sex: Male
  Weight: 77.1115 kg

DRUGS (1)
  1. VIAGRA [Suspect]
     Dosage: 1/2 PILL 2 X/WEEK ORAL
     Route: 048

REACTIONS (2)
  - HYPERMETROPIA [None]
  - VISUAL ACUITY REDUCED [None]
